FAERS Safety Report 8987604 (Version 2)
Quarter: 2013Q1

REPORT INFORMATION
  Report Type: Spontaneous
  Country: US (occurrence: US)
  Receive Date: 20121227
  Receipt Date: 20130304
  Transmission Date: 20140127
  Serious: No
  Sender: FDA-Public Use
  Company Number: US-ASTRAZENECA-2012SE90792

PATIENT
  Age: 68 Year
  Sex: Female
  Weight: 76.2 kg

DRUGS (3)
  1. ZESTRIL [Suspect]
     Indication: HYPERTENSION
     Route: 048
     Dates: start: 1999, end: 20121114
  2. ZESTRIL [Suspect]
     Indication: HYPERTENSION
     Route: 048
     Dates: start: 20121115, end: 20121129
  3. TOPROL XL [Suspect]
     Indication: HYPERTENSION
     Route: 048
     Dates: start: 1999

REACTIONS (9)
  - Blood pressure inadequately controlled [Unknown]
  - Nephrolithiasis [Unknown]
  - Osteopenia [Unknown]
  - Skin odour abnormal [Unknown]
  - Type 2 diabetes mellitus [Unknown]
  - Weight increased [Unknown]
  - Alopecia [Unknown]
  - Diarrhoea [Unknown]
  - Intentional drug misuse [Unknown]
